FAERS Safety Report 6748800-7 (Version None)
Quarter: 2010Q2

REPORT INFORMATION
  Report Type: 
  Country: None (occurrence: None)
  Receive Date: 20100601
  Receipt Date: 20100521
  Transmission Date: 20101027
  Serious: Yes (Hospitalization, Other)
  Sender: FDA-Public Use
  Company Number: PHHY2010BR33379

PATIENT
  Sex: Male

DRUGS (1)
  1. FORASEQ [Suspect]
     Indication: ASTHMA
     Dosage: BID

REACTIONS (7)
  - ABDOMINAL DISCOMFORT [None]
  - ARTERIOSCLEROSIS CORONARY ARTERY [None]
  - ASTHENIA [None]
  - CONFUSIONAL STATE [None]
  - OBSTRUCTIVE AIRWAYS DISORDER [None]
  - TRAUMATIC LUNG INJURY [None]
  - VOMITING [None]
